FAERS Safety Report 10504694 (Version 3)
Quarter: 2015Q1

REPORT INFORMATION
  Report Type: Spontaneous
  Country: JP (occurrence: JP)
  Receive Date: 20141008
  Receipt Date: 20150313
  Transmission Date: 20150720
  Serious: Yes (Life-Threatening, Hospitalization)
  Sender: FDA-Public Use
  Company Number: JP-JNJFOC-20141004478

PATIENT
  Age: 64 Year
  Sex: Male

DRUGS (11)
  1. ASACOL [Concomitant]
     Active Substance: MESALAMINE
     Route: 048
     Dates: start: 20140630, end: 20141020
  2. MIYA-BM [Concomitant]
     Active Substance: CLOSTRIDIUM BUTYRICUM SPORES STRAIN M-55
     Route: 048
     Dates: start: 20140716
  3. URIEF [Concomitant]
     Active Substance: SILODOSIN
     Route: 048
     Dates: start: 20140724
  4. PARIET [Concomitant]
     Active Substance: RABEPRAZOLE SODIUM
     Route: 048
     Dates: start: 20140630
  5. PREDONINE [Suspect]
     Active Substance: PREDNISOLONE\PREDNISOLONE ACETATE\PREDNISOLONE SODIUM SUCCINATE
     Indication: COLITIS ULCERATIVE
     Dosage: 15 MG IN MORNING AND 10 MG IN AFTERNOON
     Route: 048
     Dates: start: 20140711
  6. PREDONINE [Suspect]
     Active Substance: PREDNISOLONE\PREDNISOLONE ACETATE\PREDNISOLONE SODIUM SUCCINATE
     Indication: COLITIS ULCERATIVE
     Dosage: 10 MG IN MORNING AND 05 MG IN AFTERNOON
     Route: 048
     Dates: start: 20140804, end: 20140810
  7. REMICADE [Suspect]
     Active Substance: INFLIXIMAB
     Indication: COLITIS ULCERATIVE
     Route: 042
     Dates: start: 20140729, end: 20140729
  8. PREDONINE [Suspect]
     Active Substance: PREDNISOLONE\PREDNISOLONE ACETATE\PREDNISOLONE SODIUM SUCCINATE
     Indication: COLITIS ULCERATIVE
     Dosage: 20 MG IN MORNING AND 10 MG IN AFTERNOON
     Route: 048
     Dates: start: 20140130, end: 20140711
  9. PREDONINE [Suspect]
     Active Substance: PREDNISOLONE\PREDNISOLONE ACETATE\PREDNISOLONE SODIUM SUCCINATE
     Indication: COLITIS ULCERATIVE
     Dosage: 10 MG IN MORNING AND 10 MG IN AFTERNOON
     Route: 048
     Dates: start: 20140728, end: 20140803
  10. 5-ASA [Concomitant]
     Active Substance: MESALAMINE
     Route: 065
     Dates: start: 20140124, end: 20141020
  11. PREDONINE [Suspect]
     Active Substance: PREDNISOLONE\PREDNISOLONE ACETATE\PREDNISOLONE SODIUM SUCCINATE
     Indication: COLITIS ULCERATIVE
     Route: 048
     Dates: start: 20140811, end: 20140815

REACTIONS (5)
  - Rash erythematous [Recovering/Resolving]
  - Enanthema [Recovered/Resolved]
  - Hepatic enzyme increased [Unknown]
  - Hypokalaemia [Unknown]
  - Pneumocystis jirovecii pneumonia [Recovering/Resolving]

NARRATIVE: CASE EVENT DATE: 20140811
